FAERS Safety Report 18515822 (Version 2)
Quarter: 2021Q1

REPORT INFORMATION
  Report Type: Spontaneous
  Country: US (occurrence: US)
  Receive Date: 20201118
  Receipt Date: 20210112
  Transmission Date: 20210419
  Serious: Yes (Hospitalization, Other)
  Sender: FDA-Public Use
  Company Number: US-TEVA-2020-US-1850340

PATIENT
  Age: 60 Year
  Sex: Male
  Weight: 105.7 kg

DRUGS (15)
  1. ZETIA [Concomitant]
     Active Substance: EZETIMIBE
     Dosage: 10 MILLIGRAM DAILY;
     Route: 048
  2. ASPIRIN. [Concomitant]
     Active Substance: ASPIRIN
     Dosage: 325 MILLIGRAM DAILY;
     Route: 048
  3. VOLTAREN [Concomitant]
     Active Substance: DICLOFENAC SODIUM
     Route: 048
  4. PROAIR  HFA 108 MCG/ACT AEROSOL SOLUTION [Concomitant]
     Dosage: 2 PUFFS ONCE A DAY
  5. ADVAIR DISKUS 500?50MCG/DOSE [Concomitant]
     Dosage: BREATH ACTIVATED, I PUFF TWICE A DAY
  6. PEPCID [Concomitant]
     Active Substance: FAMOTIDINE
     Dosage: 40 MILLIGRAM DAILY;
     Route: 048
  7. LIPITOR [Concomitant]
     Active Substance: ATORVASTATIN CALCIUM
     Route: 048
  8. AMLODIPINE?VALSARTAN 10?320MG TABLET TEVA [Suspect]
     Active Substance: AMLODIPINE\VALSARTAN
     Dosage: 1 DOSAGE FORMS DAILY;
     Route: 048
  9. AMLODIPINE?VALSARTAN 10?320MG TABLET TRIGEN [Suspect]
     Active Substance: AMLODIPINE\VALSARTAN
     Dosage: 1 DOSAGE FORMS DAILY;
     Route: 048
  10. CYMBALTA [Concomitant]
     Active Substance: DULOXETINE HYDROCHLORIDE
     Route: 048
  11. AMLODIPINE?VALSARTAN 10?320MG TABLET AUROBINDO [Suspect]
     Active Substance: AMLODIPINE\VALSARTAN
     Dosage: 1 DOSAGE FORMS DAILY;
     Route: 048
  12. AMLODIPINE?VALSARTAN 10?320MG TABLET PAR [Suspect]
     Active Substance: AMLODIPINE\VALSARTAN
     Dosage: 1 DOSAGE FORMS DAILY;
     Route: 048
  13. AMLODIPINE?VALSARTAN 10?320MG TABLET LUPIN [Suspect]
     Active Substance: AMLODIPINE\VALSARTAN
     Dosage: 1 DOSAGE FORMS DAILY;
     Route: 048
  14. EXFORGE [Suspect]
     Active Substance: AMLODIPINE BESYLATE\VALSARTAN
     Dosage: 1 DOSAGE FORMS DAILY;
     Route: 048
  15. TEGRETOL [Concomitant]
     Active Substance: CARBAMAZEPINE
     Route: 048

REACTIONS (1)
  - Bladder cancer [Recovered/Resolved]
